FAERS Safety Report 21416126 (Version 1)
Quarter: 2022Q4

REPORT INFORMATION
  Report Type: Spontaneous
  Country: US (occurrence: US)
  Receive Date: 20221006
  Receipt Date: 20221006
  Transmission Date: 20230113
  Serious: No
  Sender: FDA-Public Use
  Company Number: US-ALLERGAN-2133798US

PATIENT

DRUGS (2)
  1. VRAYLAR [Suspect]
     Active Substance: CARIPRAZINE
     Indication: Bipolar I disorder
     Dosage: 1.5 MG, QOD
  2. VRAYLAR [Suspect]
     Active Substance: CARIPRAZINE
     Indication: Mania

REACTIONS (3)
  - Chest pain [Unknown]
  - Inappropriate schedule of product administration [Unknown]
  - Manic symptom [Unknown]
